FAERS Safety Report 17013335 (Version 1)
Quarter: 2019Q4

REPORT INFORMATION
  Report Type: Spontaneous
  Country: US (occurrence: US)
  Receive Date: 20191001
  Receipt Date: 20191001
  Transmission Date: 20200122
  Serious: Yes (Hospitalization)
  Sender: FDA-Public Use
  Company Number: None

PATIENT
  Age: 63 Year
  Sex: Female
  Weight: 68.2 kg

DRUGS (1)
  1. VELCADE [Suspect]
     Active Substance: BORTEZOMIB
     Dates: end: 20190917

REACTIONS (4)
  - Hypercalcaemia [None]
  - Plasma cell myeloma [None]
  - Disease progression [None]
  - Haemoglobin decreased [None]

NARRATIVE: CASE EVENT DATE: 20190924
